APPROVED DRUG PRODUCT: CLOMIPRAMINE HYDROCHLORIDE
Active Ingredient: CLOMIPRAMINE HYDROCHLORIDE
Strength: 75MG
Dosage Form/Route: CAPSULE;ORAL
Application: A074958 | Product #003
Applicant: TEVA PHARMACEUTICALS USA INC
Approved: Aug 26, 1997 | RLD: No | RS: No | Type: DISCN